FAERS Safety Report 4500680-6 (Version None)
Quarter: 2004Q4

REPORT INFORMATION
  Report Type: 
  Country: None (occurrence: None)
  Receive Date: 20041110
  Receipt Date: 20041023
  Transmission Date: 20050328
  Serious: Yes (Other)
  Sender: FDA-Public Use
  Company Number: 2004IM000917

PATIENT
  Age: 76 Year
  Sex: Female
  Weight: 108.4097 kg

DRUGS (10)
  1. ACTIMMUNE [Suspect]
     Indication: INTERSTITIAL LUNG DISEASE
     Dosage: 200 UG;TIW;SUBCUTANEOUS
     Route: 058
  2. PREDNISONE [Concomitant]
  3. GLUCOPHAGE [Concomitant]
  4. PRILOSEC [Concomitant]
  5. HYDROCODONE [Concomitant]
  6. VITAMIN C [Concomitant]
  7. CALCIUM W/MAGNESIUM [Concomitant]
  8. MULTI-VITAMINS [Concomitant]
  9. NYSTATIN [Concomitant]
  10. BENZOATE [Concomitant]

REACTIONS (2)
  - DRUG TOXICITY [None]
  - HAEMOGLOBIN DECREASED [None]
